FAERS Safety Report 10040653 (Version 2)
Quarter: 2014Q1

REPORT INFORMATION
  Report Type: Report from Study
  Country: DE (occurrence: DE)
  Receive Date: 20140327
  Receipt Date: 20140327
  Transmission Date: 20141002
  Serious: Yes (Hospitalization, Other)
  Sender: FDA-Public Use
  Company Number: DE-ROCHE-661669

PATIENT
  Age: 41 Year
  Sex: Male

DRUGS (4)
  1. MYCOPHENOLATE MOFETIL [Suspect]
     Indication: RENAL TRANSPLANT
     Dosage: FREQUENCY: 1-0-1
     Route: 048
     Dates: end: 20090904
  2. BASILIXIMAB [Suspect]
     Indication: RENAL TRANSPLANT
     Route: 065
  3. TACROLIMUS [Suspect]
     Indication: RENAL TRANSPLANT
     Dosage: FREQUENCY:3-0-2
     Route: 048
     Dates: start: 20090619
  4. PREDNISOLONE [Suspect]
     Indication: RENAL TRANSPLANT
     Dosage: FREQUENCY: 1-0-0
     Route: 048

REACTIONS (8)
  - Renal impairment [Recovered/Resolved]
  - Cytomegalovirus infection [Recovered/Resolved]
  - Blood creatinine increased [Recovered/Resolved]
  - Lymphocele [Recovered/Resolved]
  - Blood creatinine increased [Recovered/Resolved]
  - Lymphocele [Recovered/Resolved]
  - Lymphocele [Not Recovered/Not Resolved]
  - Urinary tract infection [Recovered/Resolved]
